FAERS Safety Report 5361931-1 (Version None)
Quarter: 2007Q2

REPORT INFORMATION
  Report Type: 
  Country: None (occurrence: None)
  Receive Date: 20070530
  Receipt Date: 20070312
  Transmission Date: 20071010
  Serious: Yes (Hospitalization)
  Sender: FDA-Public Use
  Company Number: 2007PV031527

PATIENT
  Age: 61 Year
  Sex: Female
  Weight: 128.368 kg

DRUGS (8)
  1. BYETTA [Suspect]
     Indication: DIABETES MELLITUS NON-INSULIN-DEPENDENT
     Dosage: SEE IMAGE
     Route: 058
     Dates: start: 20060101, end: 20060101
  2. BYETTA [Suspect]
     Indication: DIABETES MELLITUS NON-INSULIN-DEPENDENT
     Dosage: SEE IMAGE
     Route: 058
     Dates: start: 20060101, end: 20060101
  3. BYETTA [Suspect]
     Indication: DIABETES MELLITUS NON-INSULIN-DEPENDENT
     Dosage: SEE IMAGE
     Route: 058
     Dates: start: 20060101, end: 20060101
  4. BYETTA [Suspect]
     Indication: DIABETES MELLITUS NON-INSULIN-DEPENDENT
     Dosage: SEE IMAGE
     Route: 058
     Dates: start: 20060101, end: 20061101
  5. BYETTA [Suspect]
     Indication: DIABETES MELLITUS NON-INSULIN-DEPENDENT
     Dosage: SEE IMAGE
     Route: 058
     Dates: start: 20070310
  6. JANUVIA [Concomitant]
  7. STEROIDS (UNSPECIFIED) [Concomitant]
  8. ACIPHEX [Concomitant]

REACTIONS (9)
  - ABDOMINAL DISTENSION [None]
  - ABDOMINAL PAIN UPPER [None]
  - ASTHENIA [None]
  - DECREASED APPETITE [None]
  - FATIGUE [None]
  - NAUSEA [None]
  - SOMNOLENCE [None]
  - WEIGHT DECREASED [None]
  - WEIGHT INCREASED [None]
